FAERS Safety Report 8930320 (Version 1)
Quarter: 2012Q4

REPORT INFORMATION
  Report Type: 
  Country: CA (occurrence: CA)
  Receive Date: 20121128
  Receipt Date: 20121128
  Transmission Date: 20130627
  Serious: Yes (Death)
  Sender: FDA-Public Use
  Company Number: CA-GLAXOSMITHKLINE-A1001095A

PATIENT
  Age: 59 Year
  Sex: Female

DRUGS (10)
  1. FLOLAN [Suspect]
     Indication: PULMONARY ARTERIAL HYPERTENSION
     Dosage: 3MLH Continuous
     Route: 042
     Dates: start: 20111114
  2. FLOLAN [Suspect]
     Indication: PULMONARY ARTERIAL HYPERTENSION
     Route: 042
     Dates: start: 20111114
  3. SYNTHROID [Concomitant]
  4. ASA [Concomitant]
  5. LASIX [Concomitant]
  6. ZAROXOLYN [Concomitant]
  7. POTASSIUM [Concomitant]
  8. PANTOPRAZOLE [Concomitant]
  9. FERROUS SULFATE [Concomitant]
  10. CALCIUM [Concomitant]

REACTIONS (1)
  - Death [Fatal]
